FAERS Safety Report 5445700-X (Version None)
Quarter: 2007Q3

REPORT INFORMATION
  Report Type: 
  Country: None (occurrence: None)
  Receive Date: 20070904
  Receipt Date: 20070827
  Transmission Date: 20080115
  Serious: Yes (Death)
  Sender: FDA-Public Use
  Company Number: US021127

PATIENT
  Sex: Female

DRUGS (1)
  1. FENTORA [Suspect]
     Indication: MIGRAINE
     Dosage: QD BUCCAL
     Route: 002
     Dates: start: 20070401

REACTIONS (1)
  - BARBITURATES POSITIVE [None]
